FAERS Safety Report 7448955-5 (Version None)
Quarter: 2011Q2

REPORT INFORMATION
  Report Type: 
  Country: None (occurrence: None)
  Receive Date: 20110429
  Receipt Date: 20090430
  Transmission Date: 20111010
  Serious: Yes (Hospitalization, Other)
  Sender: FDA-Public Use
  Company Number: DE-GENENTECH-317670

PATIENT
  Age: 82 Year
  Sex: Female

DRUGS (1)
  1. LUCENTIS [Suspect]
     Indication: MACULAR DEGENERATION
     Route: 031

REACTIONS (2)
  - UPPER LIMB FRACTURE [None]
  - VISUAL ACUITY REDUCED [None]
